FAERS Safety Report 16906866 (Version 1)
Quarter: 2019Q4

REPORT INFORMATION
  Report Type: Spontaneous
  Country: US (occurrence: US)
  Receive Date: 20191011
  Receipt Date: 20191011
  Transmission Date: 20200122
  Serious: No
  Sender: FDA-Public Use
  Company Number: US-JNJFOC-20190939842

PATIENT
  Sex: Female

DRUGS (2)
  1. BENADRYL [Concomitant]
     Active Substance: DIPHENHYDRAMINE HYDROCHLORIDE
     Indication: PRODUCT USED FOR UNKNOWN INDICATION
     Route: 065
  2. ZYRTEC [Suspect]
     Active Substance: CETIRIZINE HYDROCHLORIDE
     Indication: MASTOCYTOSIS
     Dosage: 4 TABLETS
     Route: 048
     Dates: start: 20180131

REACTIONS (5)
  - Product use in unapproved indication [Unknown]
  - Wrong technique in product usage process [Unknown]
  - Overdose [Unknown]
  - Off label use [Unknown]
  - Hypersomnia [Unknown]
